FAERS Safety Report 23690075 (Version 7)
Quarter: 2025Q3

REPORT INFORMATION
  Report Type: Report from Study
  Country: US (occurrence: US)
  Receive Date: 20240401
  Receipt Date: 20250919
  Transmission Date: 20251021
  Serious: Yes (Hospitalization, Other)
  Sender: TAKEDA
  Company Number: US-TAKEDA-2024TUS023158

PATIENT
  Age: 78 Year
  Sex: Male

DRUGS (6)
  1. VON WILLEBRAND FACTOR (RECOMBINANT) [Suspect]
     Active Substance: VON WILLEBRAND FACTOR (RECOMBINANT)
     Indication: Product used for unknown indication
  2. VON WILLEBRAND FACTOR (RECOMBINANT) [Suspect]
     Active Substance: VON WILLEBRAND FACTOR (RECOMBINANT)
     Dosage: UNK UNK, QOD
  3. VON WILLEBRAND FACTOR (RECOMBINANT) [Suspect]
     Active Substance: VON WILLEBRAND FACTOR (RECOMBINANT)
     Dosage: 3900 INTERNATIONAL UNIT, QOD
  4. VON WILLEBRAND FACTOR (RECOMBINANT) [Suspect]
     Active Substance: VON WILLEBRAND FACTOR (RECOMBINANT)
     Dosage: 3900 INTERNATIONAL UNIT, 2/WEEK
  5. VON WILLEBRAND FACTOR (RECOMBINANT) [Suspect]
     Active Substance: VON WILLEBRAND FACTOR (RECOMBINANT)
  6. VON WILLEBRAND FACTOR (RECOMBINANT) [Suspect]
     Active Substance: VON WILLEBRAND FACTOR (RECOMBINANT)
     Dosage: 3900 INTERNATIONAL UNIT, 2/WEEK

REACTIONS (10)
  - Blood urine present [Unknown]
  - Haemorrhage [Unknown]
  - Paraesthesia [Unknown]
  - Pain [Unknown]
  - Urinary tract infection [Unknown]
  - Fall [Unknown]
  - Back pain [Unknown]
  - Head injury [Unknown]
  - Oral herpes [Unknown]
  - Limb injury [Unknown]

NARRATIVE: CASE EVENT DATE: 20240202
